FAERS Safety Report 8555380-2 (Version None)
Quarter: 2012Q3

REPORT INFORMATION
  Report Type: 
  Country: None (occurrence: None)
  Receive Date: 20120731
  Receipt Date: 20111121
  Transmission Date: 20120928
  Serious: No
  Sender: FDA-Public Use
  Company Number: US-ASTRAZENECA-2011SE37809

PATIENT
  Age: 48 Year
  Sex: Female

DRUGS (6)
  1. SEROQUEL [Suspect]
     Indication: BIPOLAR DISORDER
     Route: 048
  2. LITHIUM CARBONATE [Concomitant]
  3. ZOLOFT [Concomitant]
  4. ADERALL XR [Concomitant]
  5. KLONOPIN [Concomitant]
  6. XANAX [Concomitant]

REACTIONS (27)
  - CRYING [None]
  - MALAISE [None]
  - ACTIVITIES OF DAILY LIVING IMPAIRED [None]
  - ANXIETY [None]
  - DRUG DOSE OMISSION [None]
  - NAUSEA [None]
  - NIGHT SWEATS [None]
  - MOOD SWINGS [None]
  - MENTAL IMPAIRMENT [None]
  - HALLUCINATION, AUDITORY [None]
  - TREMOR [None]
  - INAPPROPRIATE SCHEDULE OF DRUG ADMINISTRATION [None]
  - IMPAIRED DRIVING ABILITY [None]
  - NERVOUSNESS [None]
  - HYPERHIDROSIS [None]
  - HEADACHE [None]
  - PANIC REACTION [None]
  - ASTHENIA [None]
  - DIARRHOEA [None]
  - INSOMNIA [None]
  - BIPOLAR DISORDER [None]
  - VISUAL IMPAIRMENT [None]
  - MENTAL DISORDER [None]
  - SOMNOLENCE [None]
  - DISORIENTATION [None]
  - MENSTRUAL DISORDER [None]
  - VOMITING [None]
